FAERS Safety Report 8470133-1 (Version None)
Quarter: 2012Q2

REPORT INFORMATION
  Report Type: 
  Country: None (occurrence: None)
  Receive Date: 20120627
  Receipt Date: 20120619
  Transmission Date: 20120825
  Serious: No
  Sender: FDA-Public Use
  Company Number: US-BIOGENIDEC-2012BI021957

PATIENT
  Sex: Female

DRUGS (2)
  1. AVONEX [Suspect]
     Indication: MULTIPLE SCLEROSIS
     Route: 030
     Dates: start: 20111207, end: 20120518
  2. AVONEX [Suspect]
     Route: 030
     Dates: start: 20120525

REACTIONS (3)
  - INFLUENZA LIKE ILLNESS [None]
  - HEART RATE INCREASED [None]
  - HYPOAESTHESIA [None]
